FAERS Safety Report 24582390 (Version 2)
Quarter: 2025Q1

REPORT INFORMATION
  Report Type: Report from Study
  Country: US (occurrence: US)
  Receive Date: 20241106
  Receipt Date: 20250303
  Transmission Date: 20250408
  Serious: Yes (Other)
  Sender: TAKEDA
  Company Number: US-TAKEDA-2022TUS063854

PATIENT
  Sex: Female
  Weight: 63 kg

DRUGS (20)
  1. GLASSIA [Suspect]
     Active Substance: .ALPHA.1-PROTEINASE INHIBITOR HUMAN
     Indication: Emphysema
     Dosage: 60 MILLIGRAM/KILOGRAM, 1/WEEK
     Dates: start: 20220810
  2. GLASSIA [Suspect]
     Active Substance: .ALPHA.1-PROTEINASE INHIBITOR HUMAN
     Indication: Alpha-1 antitrypsin deficiency
  3. GLASSIA [Suspect]
     Active Substance: .ALPHA.1-PROTEINASE INHIBITOR HUMAN
     Indication: Bronchiectasis
  4. DIPHENHYDRAMINE [Concomitant]
     Active Substance: DIPHENHYDRAMINE
  5. ZOLOFT [Concomitant]
     Active Substance: SERTRALINE HYDROCHLORIDE
  6. EPINEPHRINE [Concomitant]
     Active Substance: EPINEPHRINE
  7. SODIUM CHLORIDE [Concomitant]
     Active Substance: SODIUM CHLORIDE
  8. SPIRIVA RESPIMAT [Concomitant]
     Active Substance: TIOTROPIUM BROMIDE
  9. VAGIFEM [Concomitant]
     Active Substance: ESTRADIOL
  10. SPIRONOLACTONE [Concomitant]
     Active Substance: SPIRONOLACTONE
  11. ZYPREXA [Concomitant]
     Active Substance: OLANZAPINE
  12. ALPRAZOLAM [Concomitant]
     Active Substance: ALPRAZOLAM
  13. LACTOBACILLUS ACIDOPHILUS [Concomitant]
     Active Substance: LACTOBACILLUS ACIDOPHILUS
  14. MACROBID [Concomitant]
     Active Substance: NITROFURANTOIN\NITROFURANTOIN MONOHYDRATE
  15. ALBUTEROL SULFATE [Concomitant]
     Active Substance: ALBUTEROL SULFATE
  16. Lmx [Concomitant]
  17. FLONASE ALLERGY RELIEF [Concomitant]
     Active Substance: FLUTICASONE PROPIONATE
  18. MUCINEX [Concomitant]
     Active Substance: GUAIFENESIN
  19. ALBUTEROL [Concomitant]
     Active Substance: ALBUTEROL
  20. DIPHENHYDRAMINE HYDROCHLORIDE [Concomitant]
     Active Substance: DIPHENHYDRAMINE HYDROCHLORIDE

REACTIONS (15)
  - Pneumonia [Recovered/Resolved]
  - Respiratory tract congestion [Unknown]
  - Nasopharyngitis [Recovering/Resolving]
  - Respiratory tract infection [Recovered/Resolved]
  - Vein disorder [Unknown]
  - COVID-19 [Unknown]
  - Dyspnoea exertional [Unknown]
  - Exercise tolerance decreased [Unknown]
  - Infusion site extravasation [Unknown]
  - Infusion site swelling [Unknown]
  - Product dose omission issue [Unknown]
  - Chest discomfort [Recovered/Resolved]
  - Cough [Unknown]
  - Upper respiratory tract infection [Unknown]
  - Headache [Unknown]
